FAERS Safety Report 9207327 (Version 1)
Quarter: 2013Q1

REPORT INFORMATION
  Report Type: Spontaneous
  Country: US (occurrence: None)
  Receive Date: 20120803
  Receipt Date: 20120803
  Transmission Date: 20140127
  Serious: Yes (Life-Threatening, Hospitalization, Other)
  Sender: FDA-Public Use
  Company Number: 2011SP046667

PATIENT
  Age: 47 Year
  Sex: Female

DRUGS (1)
  1. INTRON A [Suspect]
     Indication: MALIGNANT MELANOMA

REACTIONS (1)
  - Cerebrovascular accident [None]
